FAERS Safety Report 15337410 (Version 1)
Quarter: 2018Q3

REPORT INFORMATION
  Report Type: Spontaneous
  Country: US (occurrence: US)
  Receive Date: 20180831
  Receipt Date: 20180831
  Transmission Date: 20181010
  Serious: No
  Sender: FDA-Public Use
  Company Number: US-JNJFOC-20180813555

PATIENT
  Sex: Female

DRUGS (2)
  1. TYLENOL EXTRA STRENGTH [Suspect]
     Active Substance: ACETAMINOPHEN
     Indication: ARTHRITIS
     Dosage: FOR ABOUT 5 TO 6 DAYS AND THEN SKIP 1 TO 2 DAYS, AND THEN TAKE THEM AGAIN.
     Route: 048
  2. TYLENOL EXTRA STRENGTH [Suspect]
     Active Substance: ACETAMINOPHEN
     Indication: MYALGIA
     Dosage: FOR ABOUT 5 TO 6 DAYS AND THEN SKIP 1 TO 2 DAYS, AND THEN TAKE THEM AGAIN.
     Route: 048

REACTIONS (3)
  - Product use complaint [Unknown]
  - Gastrooesophageal reflux disease [Recovered/Resolved]
  - Reaction to excipient [Unknown]
